FAERS Safety Report 17123748 (Version 1)
Quarter: 2019Q4

REPORT INFORMATION
  Report Type: Spontaneous
  Country: FR (occurrence: FR)
  Receive Date: 20191206
  Receipt Date: 20191206
  Transmission Date: 20200122
  Serious: Yes (Life-Threatening)
  Sender: FDA-Public Use
  Company Number: FR-MYLANLABS-2019M1120577

PATIENT
  Age: 48 Year
  Sex: Male
  Weight: 92 kg

DRUGS (4)
  1. METHOTREXATE MYLAN [Suspect]
     Active Substance: METHOTREXATE SODIUM
     Indication: CENTRAL NERVOUS SYSTEM LYMPHOMA
     Dosage: 16 GRAM, TOTAL
     Route: 041
     Dates: end: 20190712
  2. BISOCE [Concomitant]
     Active Substance: BISOPROLOL
     Dosage: UNK
     Route: 065
  3. PRIMPERAN [Concomitant]
     Active Substance: METOCLOPRAMIDE HYDROCHLORIDE
     Dosage: UNK
     Route: 065
  4. ZELITREX [Concomitant]
     Active Substance: VALACYCLOVIR HYDROCHLORIDE
     Dosage: UNK
     Route: 065

REACTIONS (4)
  - Transaminases increased [Recovering/Resolving]
  - Incorrect disposal of product [Recovering/Resolving]
  - Acute kidney injury [Not Recovered/Not Resolved]
  - Overdose [Recovering/Resolving]

NARRATIVE: CASE EVENT DATE: 20190713
